FAERS Safety Report 8490407-8 (Version None)
Quarter: 2012Q3

REPORT INFORMATION
  Report Type: 
  Country: None (occurrence: None)
  Receive Date: 20120705
  Receipt Date: 20120627
  Transmission Date: 20120928
  Serious: Yes (Other)
  Sender: FDA-Public Use
  Company Number: CN-JNJFOC-20120614680

PATIENT
  Age: 47 Year
  Sex: Male

DRUGS (3)
  1. SPORANOX [Suspect]
     Dosage: 2ND STOSS THERAPY
     Route: 048
  2. SPORANOX [Suspect]
     Dosage: 1ST STOSS THERAPY
     Route: 048
     Dates: start: 20110501
  3. SPORANOX [Suspect]
     Indication: ONYCHOMYCOSIS
     Dosage: 3RD STOSS THERAPY
     Route: 048

REACTIONS (1)
  - NERVE INJURY [None]
